FAERS Safety Report 5299378-9 (Version None)
Quarter: 2007Q2

REPORT INFORMATION
  Report Type: 
  Country: None (occurrence: None)
  Receive Date: 20070417
  Receipt Date: 20070411
  Transmission Date: 20071010
  Serious: Yes (Hospitalization)
  Sender: FDA-Public Use
  Company Number: AT-GENENTECH-239771

PATIENT
  Sex: Male

DRUGS (2)
  1. RAPTIVA [Suspect]
     Indication: PSORIASIS
     Dosage: 100 MG, UNK
     Dates: start: 20060601
  2. RAPTIVA [Suspect]
     Dosage: 1 MG/KG, 1/WEEK
     Dates: start: 20070403

REACTIONS (1)
  - HYPOAESTHESIA [None]
